FAERS Safety Report 15920555 (Version 1)
Quarter: 2019Q1

REPORT INFORMATION
  Report Type: Report from Study
  Country: BR (occurrence: BR)
  Receive Date: 20190205
  Receipt Date: 20190205
  Transmission Date: 20190417
  Serious: Yes (Life-Threatening, Other)
  Sender: FDA-Public Use
  Company Number: PHHY2015BR178209

PATIENT
  Sex: Male
  Weight: 64 kg

DRUGS (7)
  1. AFINITOR [Suspect]
     Active Substance: EVEROLIMUS
     Indication: PANCREATIC NEUROENDOCRINE TUMOUR
     Dosage: 10 MG, QD
     Route: 048
     Dates: start: 201507
  2. SANDOSTATIN LAR DEPOT [Suspect]
     Active Substance: OCTREOTIDE ACETATE
     Indication: PANCREATIC NEUROENDOCRINE TUMOUR
     Dosage: 30 MG, QMO
     Route: 030
     Dates: start: 201108
  3. SUTENT [Suspect]
     Active Substance: SUNITINIB MALATE
     Indication: METASTASES TO SPINE
     Dosage: 10 MG, QD
     Route: 048
     Dates: start: 2014
  4. GLIFAGE [Concomitant]
     Active Substance: METFORMIN HYDROCHLORIDE
     Indication: TYPE 2 DIABETES MELLITUS
     Dosage: UNK
     Route: 048
     Dates: start: 201807
  5. SANDOSTATIN LAR DEPOT [Suspect]
     Active Substance: OCTREOTIDE ACETATE
     Dosage: 30 MG, QMO
     Route: 030
     Dates: start: 2011
  6. LOSARTAN. [Concomitant]
     Active Substance: LOSARTAN
     Indication: HYPERTENSION
     Dosage: 1 DF, QD
     Route: 048
     Dates: start: 2011
  7. SANDOSTATIN LAR DEPOT [Suspect]
     Active Substance: OCTREOTIDE ACETATE
     Dosage: 10 MG, QMO
     Route: 030
     Dates: start: 201108

REACTIONS (66)
  - Pain [Recovering/Resolving]
  - Memory impairment [Recovering/Resolving]
  - Overweight [Recovered/Resolved]
  - Bacterial infection [Unknown]
  - Pain in extremity [Unknown]
  - Weight increased [Recovered/Resolved]
  - Hair colour changes [Unknown]
  - Urine analysis abnormal [Recovering/Resolving]
  - Malignant neoplasm progression [Unknown]
  - Increased appetite [Not Recovered/Not Resolved]
  - Blood test abnormal [Unknown]
  - Skin discolouration [Unknown]
  - Abdominal distension [Unknown]
  - Discomfort [Not Recovered/Not Resolved]
  - Eating disorder [Unknown]
  - Abdominal pain [Not Recovered/Not Resolved]
  - Therapeutic response decreased [Unknown]
  - Urine uric acid increased [Recovering/Resolving]
  - Ageusia [Recovered/Resolved]
  - Dysentery [Recovered/Resolved]
  - Blood cholesterol decreased [Unknown]
  - Aphonia [Unknown]
  - Ageusia [Unknown]
  - Weight increased [Not Recovered/Not Resolved]
  - Expired product administered [Unknown]
  - Metastases to gastrointestinal tract [Unknown]
  - Stomatitis [Recovered/Resolved]
  - Yellow skin [Unknown]
  - Body height abnormal [Not Recovered/Not Resolved]
  - Diarrhoea [Recovering/Resolving]
  - Spinal pain [Unknown]
  - Renal disorder [Unknown]
  - Drug ineffective [Not Recovered/Not Resolved]
  - Visual impairment [Not Recovered/Not Resolved]
  - Yellow skin [Recovered/Resolved]
  - Decreased appetite [Recovered/Resolved]
  - Weight decreased [Not Recovered/Not Resolved]
  - Back pain [Unknown]
  - Vitiligo [Unknown]
  - Dyschezia [Unknown]
  - Confusional state [Not Recovered/Not Resolved]
  - Inappropriate schedule of product administration [Not Recovered/Not Resolved]
  - Epistaxis [Recovering/Resolving]
  - Metastases to liver [Unknown]
  - Type 2 diabetes mellitus [Recovering/Resolving]
  - Nervous system disorder [Recovering/Resolving]
  - Eating disorder [Recovered/Resolved]
  - Musculoskeletal pain [Unknown]
  - Functional gastrointestinal disorder [Unknown]
  - Gastrointestinal disorder [Unknown]
  - Flatulence [Unknown]
  - Vision blurred [Unknown]
  - Injection site infection [Unknown]
  - Metastases to lung [Unknown]
  - Metastases to spine [Recovering/Resolving]
  - Osteomyelitis [Unknown]
  - Dysentery [Not Recovered/Not Resolved]
  - Malaise [Unknown]
  - Sciatica [Unknown]
  - Arthralgia [Unknown]
  - Injection site swelling [Unknown]
  - Dysgeusia [Unknown]
  - Muscle spasms [Recovering/Resolving]
  - Weight decreased [Recovered/Resolved]
  - Nervousness [Recovering/Resolving]
  - Limb discomfort [Unknown]

NARRATIVE: CASE EVENT DATE: 2013
